FAERS Safety Report 13717149 (Version 1)
Quarter: 2017Q3

REPORT INFORMATION
  Report Type: Spontaneous
  Country: US (occurrence: US)
  Receive Date: 20170704
  Receipt Date: 20170704
  Transmission Date: 20171127
  Serious: Yes (Disabling, Other)
  Sender: FDA-Public Use
  Company Number: None

PATIENT
  Age: 53 Year
  Sex: Female
  Weight: 69.75 kg

DRUGS (5)
  1. CRESTOR [Concomitant]
     Active Substance: ROSUVASTATIN CALCIUM
  2. SYNTHROID [Concomitant]
     Active Substance: LEVOTHYROXINE SODIUM
  3. 50 BILLION PRO FLORA PRO-BIOTICS [Concomitant]
  4. XTRA STRENGTH TYLENOL [Concomitant]
  5. CLINDAMYCIN. [Suspect]
     Active Substance: CLINDAMYCIN
     Indication: TOOTH INFECTION
     Dosage: ?          OTHER STRENGTH:MG;QUANTITY:1 CAPSULE(S);?
     Route: 048
     Dates: start: 20170625, end: 20170629

REACTIONS (14)
  - Abdominal pain [None]
  - Dehydration [None]
  - Asthenia [None]
  - Tinnitus [None]
  - Abdominal pain lower [None]
  - Abdominal discomfort [None]
  - Pyrexia [None]
  - Arthralgia [None]
  - Blood potassium decreased [None]
  - Haemorrhoids [None]
  - Headache [None]
  - Vomiting [None]
  - Diarrhoea [None]
  - Clostridium difficile infection [None]

NARRATIVE: CASE EVENT DATE: 20170628
